FAERS Safety Report 8876567 (Version 3)
Quarter: 2014Q1

REPORT INFORMATION
  Report Type: Spontaneous
  Country: US (occurrence: US)
  Receive Date: 20121023
  Receipt Date: 20140311
  Transmission Date: 20141002
  Serious: Yes (Hospitalization, Other)
  Sender: FDA-Public Use
  Company Number: US-ASTELLAS-2012US006115

PATIENT
  Age: 25 Year
  Sex: Male
  Weight: 81 kg

DRUGS (2)
  1. PROGRAF [Suspect]
     Indication: LIVER TRANSPLANT
     Dosage: 3 MG, BID
     Route: 048
     Dates: start: 20080212
  2. PROGRAF [Suspect]
     Dosage: 2 MG, UID/QD
     Route: 048

REACTIONS (4)
  - Alcohol poisoning [Not Recovered/Not Resolved]
  - Alcohol abuse [Recovered/Resolved]
  - Post-traumatic stress disorder [Not Recovered/Not Resolved]
  - Hodgkin^s disease [Recovered/Resolved]
